FAERS Safety Report 7378567-3 (Version None)
Quarter: 2011Q1

REPORT INFORMATION
  Report Type: 
  Country: None (occurrence: None)
  Receive Date: 20110328
  Receipt Date: 20110317
  Transmission Date: 20110831
  Serious: Yes (Hospitalization)
  Sender: FDA-Public Use
  Company Number: JP-ASTRAZENECA-2011SE12885

PATIENT
  Age: 11924 Day
  Sex: Male
  Weight: 85 kg

DRUGS (6)
  1. CALONAL [Concomitant]
     Indication: PYREXIA
     Route: 048
     Dates: end: 20110228
  2. CRESTOR [Concomitant]
     Indication: HYPERCHOLESTEROLAEMIA
     Route: 048
     Dates: end: 20110221
  3. GASTROM [Concomitant]
     Indication: GASTRITIS
     Route: 048
     Dates: end: 20110228
  4. OMEPRAL [Suspect]
     Indication: REFLUX OESOPHAGITIS
     Route: 048
     Dates: end: 20110228
  5. TAMIFLU [Concomitant]
     Indication: INFLUENZA
     Route: 048
     Dates: end: 20110225
  6. CLARITHROMYCIN [Suspect]
     Indication: RESPIRATORY TRACT INFECTION
     Route: 048
     Dates: end: 20110228

REACTIONS (1)
  - RHABDOMYOLYSIS [None]
